FAERS Safety Report 7378293-0 (Version None)
Quarter: 2011Q1

REPORT INFORMATION
  Report Type: 
  Country: None (occurrence: None)
  Receive Date: 20110328
  Receipt Date: 20110322
  Transmission Date: 20110831
  Serious: Yes (Hospitalization)
  Sender: FDA-Public Use
  Company Number: JP-ROCHE-765399

PATIENT
  Age: 59 Year
  Sex: Female

DRUGS (1)
  1. ACTEMRA [Suspect]
     Indication: RHEUMATOID ARTHRITIS
     Route: 041
     Dates: end: 20110101

REACTIONS (4)
  - DISSEMINATED INTRAVASCULAR COAGULATION [None]
  - ENDOCARDITIS STAPHYLOCOCCAL [None]
  - LEUKOENCEPHALOPATHY [None]
  - SUBARACHNOID HAEMORRHAGE [None]
